FAERS Safety Report 5650377-4 (Version None)
Quarter: 2008Q1

REPORT INFORMATION
  Report Type: 
  Country: None (occurrence: None)
  Receive Date: 20080305
  Receipt Date: 20080225
  Transmission Date: 20080703
  Serious: Yes (Hospitalization)
  Sender: FDA-Public Use
  Company Number: JP-BRISTOL-MYERS SQUIBB COMPANY-14100010

PATIENT
  Age: 84 Year
  Sex: Female

DRUGS (6)
  1. GATIFLOXACIN [Suspect]
     Indication: BRONCHITIS
     Route: 048
     Dates: start: 20080215
  2. GATIFLOXACIN [Suspect]
     Indication: PNEUMONIA
     Route: 048
     Dates: start: 20080215
  3. TAKEPRON [Concomitant]
     Route: 048
     Dates: start: 20080215
  4. THYRADIN S [Concomitant]
     Route: 048
     Dates: start: 20080215
  5. MUCOSTA [Concomitant]
     Route: 048
     Dates: start: 20080215
  6. LASIX [Concomitant]
     Route: 048
     Dates: start: 20080215

REACTIONS (1)
  - GRANULOCYTOPENIA [None]
